FAERS Safety Report 7481597-4 (Version None)
Quarter: 2011Q2

REPORT INFORMATION
  Report Type: 
  Country: None (occurrence: None)
  Receive Date: 20110516
  Receipt Date: 20110509
  Transmission Date: 20111010
  Serious: Yes (Other)
  Sender: FDA-Public Use
  Company Number: US-ROCHE-752469

PATIENT
  Sex: Female
  Weight: 43.5 kg

DRUGS (3)
  1. ACCUTANE [Suspect]
     Route: 065
     Dates: start: 19990728, end: 19991201
  2. ACCUTANE [Suspect]
     Route: 065
     Dates: start: 19971101, end: 19980301
  3. ORTHO TRI-CYCLEN [Concomitant]

REACTIONS (4)
  - MULTI-ORGAN FAILURE [None]
  - DISTURBANCE IN ATTENTION [None]
  - INFLAMMATORY BOWEL DISEASE [None]
  - VASCULITIS [None]
